FAERS Safety Report 20795296 (Version 1)
Quarter: 2022Q2

REPORT INFORMATION
  Report Type: Spontaneous
  Country: US (occurrence: US)
  Receive Date: 20220506
  Receipt Date: 20220506
  Transmission Date: 20220721
  Serious: No
  Sender: FDA-Public Use
  Company Number: US-PFIZER INC-202200544463

PATIENT
  Age: 74 Year
  Sex: Male

DRUGS (2)
  1. CHANTIX [Suspect]
     Active Substance: VARENICLINE TARTRATE
     Indication: Ex-tobacco user
     Dosage: 0.5 MG
     Route: 048
  2. TAMSULOSIN [Concomitant]
     Active Substance: TAMSULOSIN
     Indication: Prostate cancer
     Dosage: 0.4 MG, 1X/DAY (0.4MG ONE CAPSULE BY MOUTH AT BEDTIME)
     Route: 048

REACTIONS (4)
  - Recalled product administered [Unknown]
  - Feeling abnormal [Unknown]
  - Anger [Unknown]
  - Abnormal behaviour [Unknown]
